FAERS Safety Report 5992944-4 (Version None)
Quarter: 2008Q4

REPORT INFORMATION
  Report Type: 
  Country: None (occurrence: None)
  Receive Date: 20081212
  Receipt Date: 20081208
  Transmission Date: 20090506
  Serious: Yes (Other)
  Sender: FDA-Public Use
  Company Number: US-JNJFOC-20081202522

PATIENT
  Sex: Female
  Weight: 49.9 kg

DRUGS (4)
  1. DURAGESIC-100 [Suspect]
     Dosage: 2 PATCHES OF 100 UG/HR EVERY 48-72 HOURS
     Route: 062
  2. DURAGESIC-100 [Suspect]
     Indication: BONE PAIN
     Route: 062
  3. UNSPECIFIED NASAL SPRAY [Concomitant]
     Indication: BONE DISORDER
     Route: 045
  4. UNSPECIFIED DRUGS [Concomitant]
     Route: 065

REACTIONS (6)
  - ARTHROSCOPIC SURGERY [None]
  - BONE PAIN [None]
  - DIARRHOEA [None]
  - DRUG PRESCRIBING ERROR [None]
  - MUSCLE SPASMS [None]
  - TOOTH LOSS [None]
